FAERS Safety Report 10157320 (Version 3)
Quarter: 2014Q2

REPORT INFORMATION
  Report Type: Spontaneous
  Country: US (occurrence: US)
  Receive Date: 20140507
  Receipt Date: 20140613
  Transmission Date: 20141212
  Serious: Yes (Hospitalization)
  Sender: FDA-Public Use
  Company Number: US-PFIZER INC-2014122182

PATIENT
  Sex: Female

DRUGS (3)
  1. LYRICA [Suspect]
     Indication: PANCREATITIS CHRONIC
     Dosage: UNK
     Route: 048
     Dates: end: 2013
  2. LYRICA [Suspect]
     Indication: PAIN
     Dosage: UNK
     Dates: start: 2014
  3. PERCOCET [Concomitant]
     Indication: PAIN
     Dosage: UNK

REACTIONS (1)
  - Pain [Unknown]
